FAERS Safety Report 10035289 (Version 1)
Quarter: 2014Q1

REPORT INFORMATION
  Report Type: Spontaneous
  Country: US (occurrence: None)
  Receive Date: 20140306
  Receipt Date: 20140306
  Transmission Date: 20141002
  Serious: Yes (Hospitalization)
  Sender: FDA-Public Use
  Company Number: 163-21880-13011447

PATIENT
  Age: 58 Year
  Sex: Female

DRUGS (9)
  1. REVLIMID (LENALIDOMIDE) (CAPSULES) [Suspect]
     Indication: PLASMA CELL MYELOMA
     Dosage: 15 MG, 1 IN 1 D, PO
     Route: 048
     Dates: start: 20090110
  2. ASPIRIN [Concomitant]
  3. COUMADIN (WARFARIN SODIUM) [Concomitant]
  4. DEXAMETHASONE (DEXAMETHASONE) [Concomitant]
  5. HYZAAR (HYZAAR) [Concomitant]
  6. LASIX (FUROSEMIDE) [Concomitant]
  7. POTASSIUM GLUCONATE (POTASSIUM GLUCONATE) [Concomitant]
  8. VELCADE (BORTEZOMIB) [Concomitant]
  9. ZOMETA (ZOLEDRONIC ACID) [Concomitant]

REACTIONS (1)
  - Pneumonia [None]
